FAERS Safety Report 25224717 (Version 1)
Quarter: 2025Q2

REPORT INFORMATION
  Report Type: Spontaneous
  Country: US (occurrence: US)
  Receive Date: 20250422
  Receipt Date: 20250422
  Transmission Date: 20250716
  Serious: Yes (Other)
  Sender: MYLAN
  Company Number: US-MYLANLABS-2025M1034064

PATIENT
  Sex: Female

DRUGS (11)
  1. LEUCOVORIN [Suspect]
     Active Substance: LEUCOVORIN\LEUCOVORIN CALCIUM
     Indication: Adenocarcinoma of colon
  2. LEUCOVORIN [Suspect]
     Active Substance: LEUCOVORIN\LEUCOVORIN CALCIUM
  3. FLUOROURACIL [Suspect]
     Active Substance: FLUOROURACIL
     Indication: Adenocarcinoma of colon
  4. FLUOROURACIL [Suspect]
     Active Substance: FLUOROURACIL
  5. OXALIPLATIN [Suspect]
     Active Substance: OXALIPLATIN
     Indication: Adenocarcinoma of colon
  6. OXALIPLATIN [Suspect]
     Active Substance: OXALIPLATIN
  7. IRINOTECAN [Suspect]
     Active Substance: IRINOTECAN
     Indication: Adenocarcinoma of colon
  8. IRINOTECAN [Suspect]
     Active Substance: IRINOTECAN
  9. IRINOTECAN [Suspect]
     Active Substance: IRINOTECAN
  10. AVASTIN [Suspect]
     Active Substance: BEVACIZUMAB
     Indication: Adenocarcinoma of colon
  11. CAPECITABINE [Suspect]
     Active Substance: CAPECITABINE
     Indication: Adenocarcinoma of colon

REACTIONS (2)
  - Drug ineffective [Unknown]
  - Disease progression [Unknown]
